FAERS Safety Report 5940724-8 (Version None)
Quarter: 2008Q4

REPORT INFORMATION
  Report Type: 
  Country: None (occurrence: None)
  Receive Date: 20081103
  Receipt Date: 20081103
  Transmission Date: 20090506
  Serious: Yes (Hospitalization)
  Sender: FDA-Public Use
  Company Number: None

PATIENT
  Age: 83 Year
  Sex: Male

DRUGS (1)
  1. OXYCODONE HCL [Suspect]
     Indication: PAIN
     Dosage: 5 MG TID PO
     Route: 048
     Dates: start: 20081017

REACTIONS (4)
  - CONFUSIONAL STATE [None]
  - OVERDOSE [None]
  - PAIN IN EXTREMITY [None]
  - SEDATION [None]
